FAERS Safety Report 12443161 (Version 3)
Quarter: 2016Q3

REPORT INFORMATION
  Report Type: Spontaneous
  Country: JP (occurrence: JP)
  Receive Date: 20160607
  Receipt Date: 20160722
  Transmission Date: 20161109
  Serious: Yes (Life-Threatening, Hospitalization, Other)
  Sender: FDA-Public Use
  Company Number: JP-PFIZER INC-2016286492

PATIENT
  Age: 74 Year
  Sex: Female

DRUGS (6)
  1. BONALON [Concomitant]
     Active Substance: ALENDRONATE SODIUM
     Dosage: 35 MG, 1X/DAY
     Route: 048
  2. PASIL [Suspect]
     Active Substance: PAZUFLOXACIN MESILATE
     Dosage: 1000 MG, 1X/DAY
     Route: 041
     Dates: start: 20160429, end: 20160518
  3. EDIROL [Concomitant]
     Active Substance: ELDECALCITOL
     Dosage: 0.75 UG, 1X/DAY
     Route: 048
  4. JANUVIA [Concomitant]
     Active Substance: SITAGLIPTIN PHOSPHATE
     Dosage: 50 MG, 1X/DAY
     Route: 048
  5. AMLODIPINE [Concomitant]
     Active Substance: AMLODIPINE BESYLATE
     Dosage: 5 MG, 1X/DAY
     Route: 048
  6. ANAEMETRO 500MG [Suspect]
     Active Substance: METRONIDAZOLE
     Indication: BACTERIAL INFECTION
     Dosage: 500 MG, 3X/DAY
     Route: 041
     Dates: start: 20160501, end: 20160518

REACTIONS (1)
  - Pancytopenia [Recovering/Resolving]

NARRATIVE: CASE EVENT DATE: 20160518
